FAERS Safety Report 9297647 (Version 2)
Quarter: 2013Q2

REPORT INFORMATION
  Report Type: Spontaneous
  Country: US (occurrence: US)
  Receive Date: 20130520
  Receipt Date: 20130606
  Transmission Date: 20140414
  Serious: No
  Sender: FDA-Public Use
  Company Number: US-PFIZER INC-2013153338

PATIENT
  Age: 51 Year
  Sex: Female

DRUGS (2)
  1. PRISTIQ [Suspect]
     Indication: PANIC DISORDER
     Dosage: 50 MG, DAILY
     Route: 048
     Dates: start: 20091005
  2. PRISTIQ [Suspect]
     Indication: AGORAPHOBIA

REACTIONS (4)
  - Drug withdrawal syndrome [Unknown]
  - Off label use [Unknown]
  - Motion sickness [Unknown]
  - Paraesthesia [Unknown]
